FAERS Safety Report 26212167 (Version 1)
Quarter: 2025Q4

REPORT INFORMATION
  Report Type: Spontaneous
  Country: US (occurrence: US)
  Receive Date: 20251230
  Receipt Date: 20251230
  Transmission Date: 20260117
  Serious: Yes (Other)
  Sender: STRIDES
  Company Number: US-STRIDES ARCOLAB LIMITED-2025SP016182

PATIENT
  Age: 64 Year
  Sex: Female

DRUGS (1)
  1. SERTRALINE HYDROCHLORIDE [Suspect]
     Active Substance: SERTRALINE HYDROCHLORIDE
     Indication: Generalised anxiety disorder
     Dosage: 100 MILLIGRAMS PER DAY FOR 3 YEARS
     Route: 065

REACTIONS (3)
  - Multiple acyl-coenzyme A dehydrogenase deficiency [Recovering/Resolving]
  - Myopathy [Recovering/Resolving]
  - Off label use [Unknown]
